FAERS Safety Report 7609414-X (Version None)
Quarter: 2011Q3

REPORT INFORMATION
  Report Type: 
  Country: None (occurrence: None)
  Receive Date: 20110713
  Receipt Date: 20110713
  Transmission Date: 20111222
  Serious: Yes (Other)
  Sender: FDA-Public Use
  Company Number: None

PATIENT
  Age: 66 Year
  Sex: Female
  Weight: 51.8 kg

DRUGS (1)
  1. BONIVA [Suspect]
     Indication: OSTEOPOROSIS
     Dosage: ONE PILL ONCE A MONTH MOUTH
     Route: 048
     Dates: start: 20100801, end: 20110501

REACTIONS (7)
  - ABDOMINAL PAIN [None]
  - JOINT CREPITATION [None]
  - TRISMUS [None]
  - PAIN IN JAW [None]
  - CHEST PAIN [None]
  - PAIN IN EXTREMITY [None]
  - DYSPEPSIA [None]
